FAERS Safety Report 8603139-X (Version None)
Quarter: 2012Q3

REPORT INFORMATION
  Report Type: 
  Country: None (occurrence: None)
  Receive Date: 20120817
  Receipt Date: 20120810
  Transmission Date: 20120928
  Serious: Yes (Hospitalization)
  Sender: FDA-Public Use
  Company Number: PHHY2012US069518

PATIENT
  Age: 49 Year
  Sex: Male

DRUGS (2)
  1. SULFAMETHOXAZOLE AND TRIMETHOPRIM [Suspect]
  2. ATRIPLA [Suspect]
     Indication: HIV INFECTION

REACTIONS (19)
  - SKIN EXFOLIATION [None]
  - STAPHYLOCOCCAL INFECTION [None]
  - RASH [None]
  - BACTERAEMIA [None]
  - EAR INFECTION [None]
  - PSEUDOMONAS INFECTION [None]
  - SKIN OEDEMA [None]
  - SKIN DEPIGMENTATION [None]
  - HYPERKERATOSIS [None]
  - PRURITUS [None]
  - SKIN BURNING SENSATION [None]
  - SKIN PLAQUE [None]
  - RASH PAPULAR [None]
  - SKIN LESION [None]
  - LICHEN PLANUS [None]
  - LYMPHADENOPATHY [None]
  - PHOTOSENSITIVITY REACTION [None]
  - DERMATITIS EXFOLIATIVE [None]
  - HERPES SIMPLEX [None]
